FAERS Safety Report 15736294 (Version 1)
Quarter: 2018Q4

REPORT INFORMATION
  Report Type: Spontaneous
  Country: US (occurrence: US)
  Receive Date: 20181218
  Receipt Date: 20181218
  Transmission Date: 20190205
  Serious: No
  Sender: FDA-Public Use
  Company Number: US-MYLANLABS-2018M1087940

PATIENT

DRUGS (1)
  1. OXYBUTYNIN CHLORIDE EXTENDED-RELEASE TABLETS USP [Suspect]
     Active Substance: OXYBUTYNIN CHLORIDE
     Indication: BLADDER DISORDER
     Dosage: UNK
     Route: 048

REACTIONS (13)
  - Secretion discharge [Not Recovered/Not Resolved]
  - Vulvovaginal rash [Not Recovered/Not Resolved]
  - Pruritus [Recovering/Resolving]
  - Hallucination [Recovering/Resolving]
  - Dysphagia [Not Recovered/Not Resolved]
  - Seborrhoea [Not Recovered/Not Resolved]
  - Urinary hesitation [Not Recovered/Not Resolved]
  - Ear pain [Recovering/Resolving]
  - Ear infection [Recovering/Resolving]
  - Feeling abnormal [Not Recovered/Not Resolved]
  - Rash [Not Recovered/Not Resolved]
  - Rash generalised [Not Recovered/Not Resolved]
  - Feeding disorder [Not Recovered/Not Resolved]
